FAERS Safety Report 22009458 (Version 4)
Quarter: 2025Q3

REPORT INFORMATION
  Report Type: Spontaneous
  Country: US (occurrence: US)
  Receive Date: 20230220
  Receipt Date: 20250930
  Transmission Date: 20251021
  Serious: Yes (Life-Threatening, Hospitalization, Other)
  Sender: AMGEN
  Company Number: US-AMGEN-USASP2023026911

PATIENT

DRUGS (5)
  1. CARFILZOMIB [Suspect]
     Active Substance: CARFILZOMIB
     Indication: Plasma cell myeloma refractory
     Route: 065
  2. TOLODODEKIN ALFA [Concomitant]
     Active Substance: TOLODODEKIN ALFA
     Indication: Plasma cell myeloma refractory
     Dosage: 16 MILLIGRAM/KILOGRAM, QWK FOR FOR CYCLES 1/2
     Route: 042
  3. DEXAMETHASONE [Concomitant]
     Active Substance: DEXAMETHASONE
     Indication: Plasma cell myeloma refractory
     Dosage: 0 OR 40 MG QWK (WEEKLY)
     Route: 065
  4. POMALIDOMIDE [Concomitant]
     Active Substance: POMALIDOMIDE
     Indication: Plasma cell myeloma refractory
     Route: 048
  5. BORTEZOMIB [Concomitant]
     Active Substance: BORTEZOMIB
     Indication: Plasma cell myeloma refractory
     Dosage: 1.3 MILLIGRAM/SQ. METER, Q3WK (ON DAYS 1, 4, 8, AND 11 EVERY 3 WEEKS FOR 8 CYCLES)
     Route: 065

REACTIONS (22)
  - Hepatotoxicity [Unknown]
  - Renal failure [Unknown]
  - Gastrointestinal toxicity [Unknown]
  - Adverse event [Unknown]
  - Hospitalisation [Unknown]
  - Cytopenia [Unknown]
  - Cardiac disorder [Unknown]
  - Plasma cell myeloma [Unknown]
  - Lymphopenia [Unknown]
  - Cardiac failure [Unknown]
  - Leukopenia [Unknown]
  - Neutropenia [Unknown]
  - Anaemia [Unknown]
  - Hypertension [Unknown]
  - Thrombocytopenia [Unknown]
  - Neuropathy peripheral [Unknown]
  - Febrile neutropenia [Unknown]
  - Infection [Unknown]
  - Therapy partial responder [Unknown]
  - Blood creatinine increased [Unknown]
  - Liver function test increased [Unknown]
  - Therapy non-responder [Unknown]
